FAERS Safety Report 8162466-3 (Version None)
Quarter: 2012Q1

REPORT INFORMATION
  Report Type: 
  Country: None (occurrence: None)
  Receive Date: 20120224
  Receipt Date: 20120224
  Transmission Date: 20120608
  Serious: Yes (Life-Threatening, Hospitalization, Disabling)
  Sender: FDA-Public Use
  Company Number: None

PATIENT
  Sex: Male
  Weight: 72.574 kg

DRUGS (2)
  1. CEFDINIR [Suspect]
     Indication: PULMONARY CONGESTION
     Route: 048
     Dates: start: 20120215, end: 20120217
  2. CEFDINIR [Suspect]
     Indication: SINUSITIS
     Route: 048
     Dates: start: 20120215, end: 20120217

REACTIONS (2)
  - DIARRHOEA HAEMORRHAGIC [None]
  - FULL BLOOD COUNT DECREASED [None]
